FAERS Safety Report 11947682 (Version 1)
Quarter: 2016Q1

REPORT INFORMATION
  Report Type: Spontaneous
  Country: BR (occurrence: BR)
  Receive Date: 20160125
  Receipt Date: 20160125
  Transmission Date: 20160526
  Serious: Yes (Other)
  Sender: FDA-Public Use
  Company Number: BR-PFIZER INC-2015207558

PATIENT
  Age: 49 Year
  Sex: Male

DRUGS (4)
  1. TORSILAX [Concomitant]
     Active Substance: ACETAMINOPHEN\CAFFEINE\CARISOPRODOL\DICLOFENAC
     Dosage: UNK
  2. DIPIRONE [Concomitant]
     Active Substance: METAMIZOLE SODIUM
     Dosage: UNK
  3. SUTENT [Suspect]
     Active Substance: SUNITINIB MALATE
     Indication: THYROID CANCER
     Dosage: 50 MG, CYCLIC (4 PER 2)
     Route: 048
     Dates: start: 201510, end: 20160117
  4. CALCIUM [Concomitant]
     Active Substance: CALCIUM
     Dosage: UNK

REACTIONS (9)
  - Skin burning sensation [Unknown]
  - Diarrhoea [Unknown]
  - Headache [Unknown]
  - Pain [Unknown]
  - Mouth injury [Unknown]
  - Product use issue [Unknown]
  - Seizure [Unknown]
  - Skin fissures [Unknown]
  - Burning sensation [Unknown]
